FAERS Safety Report 4738800-0 (Version None)
Quarter: 2005Q3

REPORT INFORMATION
  Report Type: 
  Country: None (occurrence: None)
  Receive Date: 20050804
  Receipt Date: 20050725
  Transmission Date: 20060218
  Serious: Yes (Life-Threatening, Hospitalization, Other)
  Sender: FDA-Public Use
  Company Number: 2005095498

PATIENT
  Age: 42 Year
  Sex: Male

DRUGS (2)
  1. DEPO-MEDROL [Suspect]
     Indication: PLANTAR FASCIITIS
     Dosage: (1 ML), INTRAMUSCULAR
     Route: 030
  2. MARCAINE [Concomitant]

REACTIONS (5)
  - BLOOD PRESSURE DECREASED [None]
  - HYPERSENSITIVITY [None]
  - LOSS OF CONSCIOUSNESS [None]
  - SKIN TEST POSITIVE [None]
  - SWOLLEN TONGUE [None]
